FAERS Safety Report 7366418-2 (Version None)
Quarter: 2011Q1

REPORT INFORMATION
  Report Type: 
  Country: None (occurrence: None)
  Receive Date: 20110322
  Receipt Date: 20110308
  Transmission Date: 20110831
  Serious: Yes (Hospitalization)
  Sender: FDA-Public Use
  Company Number: US-JNJFOC-20090700163

PATIENT
  Sex: Male
  Weight: 41.7 kg

DRUGS (4)
  1. METRONIDAZOLE [Concomitant]
  2. PREDNISONE [Concomitant]
  3. REMICADE [Suspect]
     Indication: CROHN'S DISEASE
     Dosage: 7 INFUSIONS DURING THIS TIME
     Route: 042
  4. HUMIRA [Concomitant]

REACTIONS (3)
  - COLECTOMY [None]
  - CROHN'S DISEASE [None]
  - INTESTINAL RESECTION [None]
